FAERS Safety Report 7277736-0 (Version None)
Quarter: 2011Q1

REPORT INFORMATION
  Report Type: 
  Country: None (occurrence: None)
  Receive Date: 20110207
  Receipt Date: 20110131
  Transmission Date: 20110831
  Serious: Yes (Other)
  Sender: FDA-Public Use
  Company Number: US-PFIZER INC-2010128023

PATIENT
  Sex: Female
  Weight: 78.912 kg

DRUGS (12)
  1. PRISTIQ [Suspect]
     Dosage: 50 MG, 1X/DAY
     Dates: start: 20100920
  2. XANAX [Concomitant]
     Dosage: 0.25 MG, AS NEEDED, UP TO 4X DAILY
  3. GEODON [Suspect]
     Dosage: 40 MG, 1X/DAY
     Dates: end: 20100701
  4. IBUPROFEN [Suspect]
     Indication: PAIN
     Dosage: 800 MG, 3X/DAY
  5. ZOLOFT [Concomitant]
     Indication: DEPRESSION
     Dosage: 100 MG, DAILY
  6. IBUPROFEN [Suspect]
     Indication: ARTHRITIS
  7. SOMA [Concomitant]
     Indication: ARTHRITIS
     Dosage: UNK, DAILY
  8. SOMA [Concomitant]
     Indication: SLEEP DISORDER
  9. NORCO [Concomitant]
     Indication: ARTHRITIS
  10. NORCO [Concomitant]
     Indication: PAIN
     Dosage: 10MG DAILY
  11. SOMA [Concomitant]
     Indication: PAIN
  12. LEXAPRO [Concomitant]

REACTIONS (7)
  - WEIGHT DECREASED [None]
  - CHEST PAIN [None]
  - HEADACHE [None]
  - RASH [None]
  - DRUG INEFFECTIVE [None]
  - HEPATIC ENZYME INCREASED [None]
  - SCAR [None]
